FAERS Safety Report 4610134-4 (Version None)
Quarter: 2005Q1

REPORT INFORMATION
  Report Type: 
  Country: None (occurrence: None)
  Receive Date: 20050316
  Receipt Date: 20050307
  Transmission Date: 20050727
  Serious: Yes (Death)
  Sender: FDA-Public Use
  Company Number: JP-JNJFOC-20041006497

PATIENT
  Sex: Male

DRUGS (8)
  1. RISPERDAL [Suspect]
     Route: 049
  2. RISPERDAL [Suspect]
     Route: 049
  3. RISPERDAL [Suspect]
     Route: 049
  4. RISPERDAL [Suspect]
     Indication: SCHIZOPHRENIA
     Route: 049
  5. NITROGLYCERIN [Concomitant]
  6. DIAZEPAM [Concomitant]
  7. DIAZEPAM [Concomitant]
     Indication: ANGINA PECTORIS
  8. BIPERIDEN HYDROCHLORIDE TAB [Concomitant]
     Indication: ANGINA PECTORIS

REACTIONS (3)
  - ACUTE MYOCARDIAL INFARCTION [None]
  - ANGINA PECTORIS [None]
  - EXTRAPYRAMIDAL DISORDER [None]
